FAERS Safety Report 6670992-9 (Version None)
Quarter: 2010Q2

REPORT INFORMATION
  Report Type: 
  Country: None (occurrence: None)
  Receive Date: 20100407
  Receipt Date: 20100325
  Transmission Date: 20101027
  Serious: Yes (Hospitalization, Other)
  Sender: FDA-Public Use
  Company Number: PHEH2008US09090

PATIENT
  Sex: Male

DRUGS (48)
  1. AREDIA [Suspect]
     Dosage: UNK
     Dates: start: 20020601
  2. ARIXTRA [Concomitant]
  3. PREDNISONE TAB [Concomitant]
     Dosage: 10 MG, UNK
  4. GABAPENTIN [Concomitant]
  5. NEUMEGA [Concomitant]
  6. REVLIMID [Concomitant]
  7. THALIDOMIDE [Concomitant]
  8. DILAUDID [Concomitant]
  9. DARVOCET-N 100 [Concomitant]
  10. ROCEPHIN [Concomitant]
  11. CIPRO [Concomitant]
  12. NORCO [Concomitant]
  13. ENTEX CAP [Concomitant]
  14. CYTOXAN [Concomitant]
  15. ARANESP [Concomitant]
  16. ANDROGEL [Concomitant]
  17. DIOVAN HCT [Concomitant]
  18. VITAMIN E [Concomitant]
  19. DIOVAN [Concomitant]
  20. NEXIUM [Concomitant]
  21. KEFLEX [Concomitant]
  22. LASIX [Concomitant]
  23. PROSCAR [Concomitant]
  24. VITAMIN B6 [Concomitant]
  25. ASPIRIN [Concomitant]
  26. CELEBREX [Concomitant]
  27. CURCUMEN [Concomitant]
  28. ESTINYL [Concomitant]
  29. LIPITOR [Concomitant]
  30. CYMBALTA [Concomitant]
  31. ROCALTROL [Concomitant]
  32. LEUKINE [Concomitant]
  33. NEURONTIN [Concomitant]
  34. ALDACTONE [Concomitant]
  35. LUPRON [Concomitant]
  36. ZYPREXA [Concomitant]
  37. VANCOMYCIN [Concomitant]
  38. TAXOTERE [Concomitant]
  39. SANDOSTATIN [Concomitant]
  40. TESTOSTERONE [Concomitant]
  41. CHLORHEXIDINE GLUCONATE [Concomitant]
  42. TARCEVA [Concomitant]
  43. DEXAMETHASONE [Concomitant]
     Dosage: UNK
  44. EPOGEN [Concomitant]
     Dosage: UNK
  45. GEMZAR [Concomitant]
     Dosage: UNK
  46. CARBOPLATIN [Concomitant]
     Dosage: UNK
  47. COUMADIN [Concomitant]
     Dosage: UNK
  48. EMCYT [Concomitant]
     Dosage: UNK

REACTIONS (67)
  - ABDOMINAL DISCOMFORT [None]
  - ABDOMINAL PAIN [None]
  - AMNESIA [None]
  - ANAEMIA [None]
  - ANHEDONIA [None]
  - ANXIETY [None]
  - AORTIC ARTERIOSCLEROSIS [None]
  - APHASIA [None]
  - BACK PAIN [None]
  - BOWEL MOVEMENT IRREGULARITY [None]
  - CELLULITIS [None]
  - CEREBRAL ATROPHY [None]
  - CEREBRAL INFARCTION [None]
  - CEREBROVASCULAR ACCIDENT [None]
  - CHOLECYSTECTOMY [None]
  - CHOLELITHIASIS [None]
  - DECREASED APPETITE [None]
  - DERMAL CYST [None]
  - DIARRHOEA [None]
  - DISABILITY [None]
  - DIVERTICULUM [None]
  - DYSARTHRIA [None]
  - ENCEPHALOMALACIA [None]
  - GINGIVAL PAIN [None]
  - GINGIVAL RECESSION [None]
  - GLIOSIS [None]
  - HAEMANGIOMA [None]
  - HEAT EXHAUSTION [None]
  - HEPATIC CYST [None]
  - HIATUS HERNIA [None]
  - HYPERLIPIDAEMIA [None]
  - HYPERTENSION [None]
  - HYPOGEUSIA [None]
  - INJURY [None]
  - LEUKOPENIA [None]
  - LOOSE TOOTH [None]
  - LOSS OF CONSCIOUSNESS [None]
  - MUSCLE SPASMS [None]
  - MUSCLE STRAIN [None]
  - NASAL ODOUR [None]
  - NEPHROLITHIASIS [None]
  - NEUROPATHY PERIPHERAL [None]
  - NEUTROPENIA [None]
  - ORAL PAIN [None]
  - OSTEOARTHRITIS [None]
  - OSTEONECROSIS [None]
  - OSTEOPENIA [None]
  - PAIN [None]
  - PAIN IN JAW [None]
  - PANCYTOPENIA [None]
  - PAROTID GLAND ENLARGEMENT [None]
  - PLEURAL EFFUSION [None]
  - PULMONARY CONGESTION [None]
  - RADIOTHERAPY [None]
  - SALIVARY GLAND PAIN [None]
  - SINUS DISORDER [None]
  - SINUSITIS [None]
  - SOMNOLENCE [None]
  - SPONDYLOPATHY TRAUMATIC [None]
  - STOMATITIS [None]
  - TENDONITIS [None]
  - THROMBOCYTOPENIA [None]
  - TOOTH EXTRACTION [None]
  - TOOTH FRACTURE [None]
  - TOOTHACHE [None]
  - URINARY HESITATION [None]
  - WEIGHT DECREASED [None]
